FAERS Safety Report 16977584 (Version 2)
Quarter: 2020Q2

REPORT INFORMATION
  Report Type: Report from Study
  Country: None (occurrence: AU)
  Receive Date: 20191031
  Receipt Date: 20200403
  Transmission Date: 20200713
  Serious: Yes (Hospitalization, Other)
  Sender: FDA-Public Use
  Company Number: AU-ABBVIE-19K-008-2979118-00

PATIENT
  Age: 51 Year
  Sex: Female

DRUGS (1)
  1. HUMIRA [Suspect]
     Active Substance: ADALIMUMAB
     Indication: PSORIATIC ARTHROPATHY
     Route: 058

REACTIONS (13)
  - Epicondylitis [Not Recovered/Not Resolved]
  - Hypotension [Unknown]
  - Loss of consciousness [Recovered/Resolved]
  - Epicondylitis [Recovering/Resolving]
  - Abdominal discomfort [Not Recovered/Not Resolved]
  - Erythema [Recovering/Resolving]
  - Cholecystectomy [Unknown]
  - Bowel movement irregularity [Unknown]
  - Cold sweat [Unknown]
  - Joint range of motion decreased [Recovered/Resolved]
  - Blood potassium decreased [Unknown]
  - Feeling hot [Recovered/Resolved]
  - Arthralgia [Not Recovered/Not Resolved]

NARRATIVE: CASE EVENT DATE: 2019
